FAERS Safety Report 4814426-5 (Version None)
Quarter: 2005Q4

REPORT INFORMATION
  Report Type: 
  Country: None (occurrence: None)
  Receive Date: 20051028
  Receipt Date: 20050824
  Transmission Date: 20060501
  Serious: No
  Sender: FDA-Public Use
  Company Number: US-GLAXOSMITHKLINE-A0571641A

PATIENT
  Age: 58 Year
  Sex: Male

DRUGS (4)
  1. ADVAIR DISKUS 100/50 [Suspect]
     Indication: ASTHMA
     Dosage: 1PUFF TWICE PER DAY
     Route: 055
     Dates: start: 20050804
  2. SPIRIVA [Concomitant]
  3. AZMACORT [Concomitant]
     Dates: start: 19990101
  4. COMBIVENT [Concomitant]
     Dates: start: 19990101

REACTIONS (4)
  - COUGH [None]
  - DYSPNOEA [None]
  - PEAK EXPIRATORY FLOW RATE DECREASED [None]
  - RESPIRATORY TRACT CONGESTION [None]
